FAERS Safety Report 6156500-X (Version None)
Quarter: 2009Q2

REPORT INFORMATION
  Report Type: 
  Country: None (occurrence: None)
  Receive Date: 20090413
  Receipt Date: 20080926
  Transmission Date: 20091009
  Serious: Yes (Other)
  Sender: FDA-Public Use
  Company Number: OPER20080191

PATIENT
  Age: 39 Year
  Sex: Female
  Weight: 90.7194 kg

DRUGS (8)
  1. OPANA ER [Suspect]
     Indication: BACK PAIN
     Dosage: 10 MG, QID PRN, PER ORAL
     Route: 048
     Dates: start: 20080924, end: 20080925
  2. OPANA ER [Suspect]
     Indication: BACK PAIN
     Dosage: 20 MG, BID, PER ORAL
     Route: 048
     Dates: start: 20080924, end: 20080925
  3. OPANA ER [Suspect]
     Indication: PHANTOM PAIN
     Dosage: 20 MG, BID, PER ORAL
     Route: 048
     Dates: start: 20080924, end: 20080925
  4. PERCOCET [Concomitant]
  5. METHADONE HCL [Concomitant]
  6. PLAVIX [Concomitant]
  7. ASPIRIN [Concomitant]
  8. METOPROLOL SUCCINATE [Concomitant]

REACTIONS (3)
  - DRUG INEFFECTIVE [None]
  - MEDICATION ERROR [None]
  - MIGRAINE [None]
